FAERS Safety Report 17361638 (Version 1)
Quarter: 2020Q1

REPORT INFORMATION
  Report Type: Spontaneous
  Country: US (occurrence: US)
  Receive Date: 20200203
  Receipt Date: 20200203
  Transmission Date: 20200409
  Serious: No
  Sender: FDA-Public Use
  Company Number: US-PFIZER INC-2020043935

PATIENT
  Sex: Female

DRUGS (1)
  1. IBRANCE [Suspect]
     Active Substance: PALBOCICLIB
     Dosage: UNK

REACTIONS (7)
  - Asthenia [Unknown]
  - Diarrhoea [Unknown]
  - Hair texture abnormal [Unknown]
  - Malaise [Unknown]
  - Fatigue [Unknown]
  - Depression [Unknown]
  - Lymphoedema [Unknown]
